FAERS Safety Report 18050488 (Version 4)
Quarter: 2021Q1

REPORT INFORMATION
  Report Type: Spontaneous
  Country: US (occurrence: US)
  Receive Date: 20200721
  Receipt Date: 20210120
  Transmission Date: 20210419
  Serious: Yes (Disabling, Other)
  Sender: FDA-Public Use
  Company Number: US-PURDUE-USA-2020-0156528

PATIENT
  Age: 56 Year
  Sex: Male

DRUGS (5)
  1. OXYCODONE HCL TABLETS (RHODES 91?490) [Suspect]
     Active Substance: OXYCODONE HYDROCHLORIDE
     Indication: PRODUCT USED FOR UNKNOWN INDICATION
     Dosage: UNK
     Route: 048
     Dates: start: 2000
  2. TRAMADOL. [Suspect]
     Active Substance: TRAMADOL
     Indication: PRODUCT USED FOR UNKNOWN INDICATION
     Dosage: UNK
     Route: 048
  3. GLEEVEC [Concomitant]
     Active Substance: IMATINIB MESYLATE
     Indication: CHEMOTHERAPY
     Dosage: UNK
     Route: 048
  4. OXYCONTIN [Suspect]
     Active Substance: OXYCODONE HYDROCHLORIDE
     Indication: PRODUCT USED FOR UNKNOWN INDICATION
     Dosage: UNK
     Route: 048
     Dates: start: 2000
  5. HYDROCODONE BITARTRATE AND ACETAMINOPHEN [Suspect]
     Active Substance: ACETAMINOPHEN\HYDROCODONE BITARTRATE
     Indication: PRODUCT USED FOR UNKNOWN INDICATION
     Dosage: UNK
     Route: 048

REACTIONS (14)
  - Hyperhidrosis [Unknown]
  - Disability [Unknown]
  - Drug withdrawal syndrome [Unknown]
  - Restless legs syndrome [Unknown]
  - Gait disturbance [Unknown]
  - Unevaluable event [Unknown]
  - Drug dependence [Not Recovered/Not Resolved]
  - Nausea [Unknown]
  - Retching [Unknown]
  - Muscle spasms [Unknown]
  - Pain [Unknown]
  - Abdominal pain upper [Unknown]
  - Fatigue [Unknown]
  - Feeling jittery [Unknown]
